FAERS Safety Report 8478304-5 (Version None)
Quarter: 2012Q2

REPORT INFORMATION
  Report Type: 
  Country: None (occurrence: None)
  Receive Date: 20120629
  Receipt Date: 20120620
  Transmission Date: 20120825
  Serious: Yes (Hospitalization)
  Sender: FDA-Public Use
  Company Number: US-JNJFOC-20120610616

PATIENT
  Sex: Female
  Weight: 86.18 kg

DRUGS (8)
  1. FOLIC ACID [Concomitant]
     Indication: RHEUMATOID ARTHRITIS
     Route: 048
  2. FLEXERIL [Concomitant]
     Indication: MUSCLE RELAXANT THERAPY
     Route: 048
  3. EVOXAC [Concomitant]
     Indication: SJOGREN'S SYNDROME
     Route: 048
     Dates: start: 20090101
  4. LUNESTA [Concomitant]
     Indication: SLEEP DISORDER
     Route: 048
     Dates: start: 20090101
  5. REMICADE [Suspect]
     Indication: RHEUMATOID ARTHRITIS
     Dosage: 4 VIALS, HAD INITIATED INFLIXIMAB EITHER IN 2009 OR 2010
     Route: 042
     Dates: end: 20120501
  6. SEROQUEL XR [Concomitant]
     Indication: DEPRESSION
     Route: 065
  7. HYDROCODONE BITARTRATE [Concomitant]
     Indication: PAIN
     Dosage: 5/325 MG
     Route: 048
  8. XANAX [Concomitant]
     Indication: ANXIETY
     Route: 048

REACTIONS (7)
  - DRUG INEFFECTIVE [None]
  - BLOOD POTASSIUM DECREASED [None]
  - FALL [None]
  - DEPRESSED LEVEL OF CONSCIOUSNESS [None]
  - ADVERSE EVENT [None]
  - ANKLE FRACTURE [None]
  - FEELING ABNORMAL [None]
